FAERS Safety Report 4347365-7 (Version None)
Quarter: 2004Q2

REPORT INFORMATION
  Report Type: 
  Country: None (occurrence: None)
  Receive Date: 20040421
  Receipt Date: 20030228
  Transmission Date: 20050107
  Serious: No
  Sender: FDA-Public Use
  Company Number: 1553-153-2

PATIENT
  Sex: Female
  Weight: 52.7 kg

DRUGS (1)
  1. DEXFERRUM [Suspect]
     Indication: IRON DEFICIENCY ANAEMIA
     Dosage: 1200 G ONCE IV
     Route: 042

REACTIONS (2)
  - CHEST DISCOMFORT [None]
  - DYSPNOEA [None]
